FAERS Safety Report 10528266 (Version 2)
Quarter: 2014Q4

REPORT INFORMATION
  Report Type: Spontaneous
  Country: BE (occurrence: None)
  Receive Date: 20141016
  Receipt Date: 20141211
  Transmission Date: 20150528
  Serious: Yes (Death, Other)
  Sender: FDA-Public Use
  Company Number: 2014SCAL000173

PATIENT
  Age: 38 Year
  Sex: Female

DRUGS (2)
  1. VERAPAMIL [Concomitant]
     Active Substance: VERAPAMIL HYDROCHLORIDE
  2. VENLAFAXINE HYDROCHLORIDE (VENLAFAXINE HYDROCHLORIDE) UNKNOWN [Suspect]
     Active Substance: VENLAFAXINE HYDROCHLORIDE
     Indication: PRODUCT USED FOR UNKNOWN INDICATION

REACTIONS (10)
  - Acute kidney injury [None]
  - Rhabdomyolysis [None]
  - Multi-organ failure [None]
  - Overdose [None]
  - Left ventricular failure [None]
  - Hepatic ischaemia [None]
  - Pneumococcal sepsis [None]
  - Cardiac failure acute [None]
  - Cardiotoxicity [None]
  - Cardiogenic shock [None]
